FAERS Safety Report 17658083 (Version 1)
Quarter: 2020Q2

REPORT INFORMATION
  Report Type: Spontaneous
  Country: US (occurrence: US)
  Receive Date: 20200411
  Receipt Date: 20200411
  Transmission Date: 20200713
  Serious: No
  Sender: FDA-Public Use
  Company Number: US-TEVA-2020-US-1220173

PATIENT
  Sex: Male

DRUGS (1)
  1. TRAMADOL. [Suspect]
     Active Substance: TRAMADOL
     Route: 065

REACTIONS (7)
  - Haemorrhoids [Unknown]
  - Impaired driving ability [Unknown]
  - Feeling drunk [Unknown]
  - Pharyngeal ulceration [Unknown]
  - Head banging [Unknown]
  - Headache [Unknown]
  - Dizziness [Unknown]
